FAERS Safety Report 4673394-X (Version None)
Quarter: 2005Q2

REPORT INFORMATION
  Report Type: 
  Country: None (occurrence: None)
  Receive Date: 20050523
  Receipt Date: 20050510
  Transmission Date: 20051028
  Serious: Yes (Hospitalization)
  Sender: FDA-Public Use
  Company Number: SUS1-2005-00193

PATIENT
  Age: 49 Year
  Sex: Male

DRUGS (3)
  1. PENTASA CR [Suspect]
     Indication: COLITIS ULCERATIVE
     Dosage: 2 G, DAILY, ORAL
     Route: 048
     Dates: start: 20050101, end: 20050101
  2. PENTASA CR [Suspect]
     Indication: COLITIS ULCERATIVE
     Dosage: 2 G, DAILY, ORAL
     Route: 048
     Dates: end: 20050201
  3. DIPENTUM [Suspect]
     Dosage: ORAL
     Route: 048
     Dates: start: 20050304, end: 20050301

REACTIONS (3)
  - INFLUENZA LIKE ILLNESS [None]
  - PLATELET COUNT INCREASED [None]
  - THROMBOCYTOPENIA [None]
